FAERS Safety Report 4855869-3 (Version None)
Quarter: 2005Q4

REPORT INFORMATION
  Report Type: 
  Country: None (occurrence: None)
  Receive Date: 20051215
  Receipt Date: 20051215
  Transmission Date: 20060501
  Serious: Yes (Life-Threatening, Hospitalization)
  Sender: FDA-Public Use
  Company Number: None

PATIENT
  Age: 86 Year
  Sex: Male
  Weight: 64.4108 kg

DRUGS (2)
  1. PRAVASTATIN [Suspect]
     Indication: BLOOD CHOLESTEROL INCREASED
     Dosage: 20 MG NIGHTLY PO
     Route: 048
     Dates: start: 19980101, end: 20051113
  2. PRAVASTATIN [Suspect]
     Indication: CEREBROVASCULAR ACCIDENT PROPHYLAXIS
     Dosage: 20 MG NIGHTLY PO
     Route: 048
     Dates: start: 19980101, end: 20051113

REACTIONS (7)
  - CONFUSIONAL STATE [None]
  - DIFFICULTY IN WALKING [None]
  - DYSSTASIA [None]
  - MOBILITY DECREASED [None]
  - MUSCULAR WEAKNESS [None]
  - MYALGIA [None]
  - WHEELCHAIR USER [None]
